FAERS Safety Report 6290643-5 (Version None)
Quarter: 2009Q3

REPORT INFORMATION
  Report Type: 
  Country: None (occurrence: None)
  Receive Date: 20090730
  Receipt Date: 20090716
  Transmission Date: 20100115
  Serious: Yes (Other)
  Sender: FDA-Public Use
  Company Number: PHHY2009DE29626

PATIENT
  Sex: Female

DRUGS (3)
  1. DIOVAN [Suspect]
     Indication: HYPERTENSION
     Dosage: 1 DF, QD
     Dates: start: 20090501
  2. PLAVIX [Concomitant]
     Dosage: UNK
     Dates: start: 20090501
  3. CRATAEGUTT [Concomitant]
     Dosage: UNK

REACTIONS (2)
  - HAEMATURIA [None]
  - RENAL HAEMORRHAGE [None]
